FAERS Safety Report 5332356-X (Version None)
Quarter: 2007Q2

REPORT INFORMATION
  Report Type: 
  Country: None (occurrence: None)
  Receive Date: 20070523
  Receipt Date: 20070521
  Transmission Date: 20071010
  Serious: Yes (Other)
  Sender: FDA-Public Use
  Company Number: A0652174A

PATIENT
  Age: 74 Year
  Sex: Male

DRUGS (10)
  1. AVANDIA [Suspect]
     Dosage: 4MG PER DAY
     Route: 048
     Dates: start: 20040101
  2. PRANDIN [Concomitant]
  3. TOPROL-XL [Concomitant]
  4. WARFARIN SODIUM [Concomitant]
  5. LIPITOR [Concomitant]
  6. TRICOR [Concomitant]
  7. ALLEGRA [Concomitant]
  8. ZETIA [Concomitant]
  9. DIGOXIN [Concomitant]
  10. HYDROCHLOROTHIAZIDE [Concomitant]

REACTIONS (5)
  - CATARACT [None]
  - CORNEAL DISORDER [None]
  - OEDEMA PERIPHERAL [None]
  - OPTIC NERVE DISORDER [None]
  - WEIGHT DECREASED [None]
